FAERS Safety Report 8882607 (Version 1)
Quarter: 2012Q4

REPORT INFORMATION
  Report Type: 
  Country: CA (occurrence: CA)
  Receive Date: 20121104
  Receipt Date: 20121104
  Transmission Date: 20130627
  Serious: Yes (Hospitalization, Other)
  Sender: FDA-Public Use
  Company Number: PHMT2006CA02261

PATIENT
  Age: 58 Year
  Sex: Female

DRUGS (7)
  1. SANDOSTATIN LAR [Suspect]
     Indication: ACROMEGALY
     Dosage: 10 mg, every 4 weeks
     Dates: start: 20061103
  2. SANDOSTATIN LAR [Suspect]
     Dosage: 20 mg, every 4 weeks
     Route: 030
     Dates: start: 20070122
  3. CALCIUM W/VITAMIN D NOS [Concomitant]
  4. CRESTOR [Concomitant]
  5. GRAVOL [Concomitant]
  6. MULTI-VIT [Concomitant]
  7. PAXIL [Concomitant]

REACTIONS (19)
  - Syncope [Unknown]
  - Loss of consciousness [Unknown]
  - Headache [Unknown]
  - Injection site pain [Unknown]
  - Dizziness [Unknown]
  - Blood pressure decreased [Unknown]
  - Hypertension [Unknown]
  - Malaise [Unknown]
  - Hyperhidrosis [Unknown]
  - Hot flush [Unknown]
  - Erythema [Unknown]
  - Anxiety [Unknown]
  - Vomiting [Unknown]
  - Abdominal pain [Unknown]
  - Nausea [Unknown]
  - Heart rate increased [Unknown]
  - Asthenia [Unknown]
  - Fatigue [Unknown]
  - Alopecia [Unknown]
